FAERS Safety Report 4462369-1 (Version None)
Quarter: 2004Q3

REPORT INFORMATION
  Report Type: 
  Country: None (occurrence: None)
  Receive Date: 20040923
  Receipt Date: 20040913
  Transmission Date: 20050211
  Serious: Yes (Disabling)
  Sender: FDA-Public Use
  Company Number: 03P-167-0245200-00

PATIENT
  Age: 56 Year
  Sex: Male
  Weight: 103.1 kg

DRUGS (15)
  1. HUMIRA [Suspect]
     Indication: RHEUMATOID ARTHRITIS
     Dosage: 40  MG, 1 IN 2 WK, SUBCUTANEOUS
     Route: 058
     Dates: start: 20031105, end: 20031119
  2. PREDNISOLONE [Concomitant]
  3. ANTI-HYPERTENSIVE [Concomitant]
  4. INFLIXIMAB [Concomitant]
  5. ETANERCEPT [Concomitant]
  6. PANTOPRAZOLE [Concomitant]
  7. METHOTREXATE SODIUM [Concomitant]
  8. FOLIC ACID [Concomitant]
  9. ACETAMINOPHEN AND CODEINE PHOSPHATE [Concomitant]
  10. PROCHLORPERAZINE [Concomitant]
  11. LEKOVIT CA [Concomitant]
  12. CYCLOSPORINE [Concomitant]
  13. AMLODIPINE [Concomitant]
  14. ATENOLOL [Concomitant]
  15. ETORICOXIB [Concomitant]

REACTIONS (10)
  - AGITATION [None]
  - ANGER [None]
  - DISTURBANCE IN ATTENTION [None]
  - FEAR [None]
  - HEADACHE [None]
  - MOOD SWINGS [None]
  - NAUSEA [None]
  - SLEEP DISORDER [None]
  - TEARFULNESS [None]
  - TREMOR [None]
